FAERS Safety Report 25221197 (Version 1)
Quarter: 2025Q2

REPORT INFORMATION
  Report Type: Spontaneous
  Country: KW (occurrence: None)
  Receive Date: 20250421
  Receipt Date: 20250421
  Transmission Date: 20250717
  Serious: Yes (Other)
  Sender: INCYTE
  Company Number: KW-002147023-NVSC2025KW063250

PATIENT
  Age: 56 Year

DRUGS (4)
  1. RUXOLITINIB [Suspect]
     Active Substance: RUXOLITINIB
     Indication: Myelofibrosis
     Dosage: 15 MG, BID
     Route: 065
  2. RUXOLITINIB [Suspect]
     Active Substance: RUXOLITINIB
     Dosage: 10 MG, BID
     Route: 065
  3. RUXOLITINIB [Suspect]
     Active Substance: RUXOLITINIB
     Dosage: 5 MG, BID
     Route: 065
  4. PREDNISOLONE [Concomitant]
     Active Substance: PREDNISOLONE
     Indication: Product used for unknown indication
     Route: 065

REACTIONS (8)
  - Abdominal discomfort [Unknown]
  - Disturbance in attention [Unknown]
  - Early satiety [Unknown]
  - Decreased activity [Unknown]
  - Fatigue [Unknown]
  - Myelofibrosis [Unknown]
  - Bone marrow failure [Unknown]
  - Pallor [Unknown]
